FAERS Safety Report 8533838-X (Version None)
Quarter: 2012Q3

REPORT INFORMATION
  Report Type: 
  Country: None (occurrence: None)
  Receive Date: 20120705
  Receipt Date: 20120619
  Transmission Date: 20120928
  Serious: Yes (Hospitalization, Disabling, Other)
  Sender: FDA-Public Use
  Company Number: 2012PROUSA01565

PATIENT
  Age: 70 Year
  Sex: Male
  Weight: 88 kg

DRUGS (17)
  1. PROVENGE [Suspect]
     Dosage: 250 ML, SINGLE, INTRAVENOUS
     Route: 042
     Dates: start: 20120618, end: 20120618
  2. TRICOR [Concomitant]
  3. FELODIPINE ACTAVIS (FELODIPINE) [Concomitant]
  4. DIGOXIN [Concomitant]
  5. LIPITOR [Concomitant]
  6. DIPHENHYDRAMIN HCL (DIPHENHYDRAMINE HYDROCHLORIDE) [Concomitant]
  7. WARFARIN SODIUM [Concomitant]
  8. LISINOPRIL [Concomitant]
  9. TOPROL-XL [Concomitant]
  10. PROVENGE [Suspect]
     Indication: PROSTATE CANCER METASTATIC
     Dosage: 250 ML, SINGLE, INTRAVENOUS
     Route: 042
     Dates: start: 20120514, end: 20120514
  11. ZOLEDRONIC ACID [Concomitant]
  12. CALTRATE (CALCIUM CARBONATE, COLECALCIFEROL) [Concomitant]
  13. PROVENGE [Suspect]
     Dosage: 250 ML, SINGLE, INTRAVENOUS
     Route: 042
     Dates: start: 20120604, end: 20120604
  14. ACETAMINOPHEN [Concomitant]
  15. CASODEX [Concomitant]
  16. CALTRATE + D (CALCIUM CARBONATE, COLECALCIFEROL) [Concomitant]
  17. LEVAQUIN [Concomitant]

REACTIONS (1)
  - CEREBROVASCULAR ACCIDENT [None]
